FAERS Safety Report 4853026-8 (Version None)
Quarter: 2005Q4

REPORT INFORMATION
  Report Type: 
  Country: None (occurrence: None)
  Receive Date: 20051212
  Receipt Date: 20051129
  Transmission Date: 20060501
  Serious: Yes (Other)
  Sender: FDA-Public Use
  Company Number: 137355

PATIENT
  Age: 60 Year
  Sex: Female

DRUGS (3)
  1. NYOLOL (TIMOLOL MALEATE) EYE DROPS [Suspect]
     Indication: GLAUCOMA
     Dosage: TOPICAL
     Route: 047
  2. DORZOLAMIDE EYE DROPS [Suspect]
     Indication: GLAUCOMA
     Dosage: TOPICAL
     Route: 047
  3. LATANOPROST EYE DROPS [Suspect]
     Indication: GLAUCOMA
     Dosage: TOPICAL
     Route: 047

REACTIONS (9)
  - ALANINE AMINOTRANSFERASE INCREASED [None]
  - ASPARTATE AMINOTRANSFERASE INCREASED [None]
  - BLOOD ALKALINE PHOSPHATASE INCREASED [None]
  - GAMMA-GLUTAMYLTRANSFERASE INCREASED [None]
  - HYPOALBUMINAEMIA [None]
  - LEUKOPENIA [None]
  - LYMPHOPENIA [None]
  - NEUTROPENIA [None]
  - TOXIC EPIDERMAL NECROLYSIS [None]
